FAERS Safety Report 6424036-4 (Version None)
Quarter: 2009Q4

REPORT INFORMATION
  Report Type: 
  Country: None (occurrence: None)
  Receive Date: 20091030
  Receipt Date: 20091030
  Transmission Date: 20100525
  Serious: Yes (Hospitalization)
  Sender: FDA-Public Use
  Company Number: None

PATIENT
  Sex: Male
  Weight: 32 kg

DRUGS (4)
  1. RITUXAN [Suspect]
     Indication: DERMATOMYOSITIS
     Dosage: 800 MG ONE TIME ONLY IV
     Route: 042
     Dates: start: 20091013
  2. RITUXAN [Suspect]
  3. RITUXAN [Suspect]
  4. RITUXAN [Suspect]

REACTIONS (5)
  - DYSPNOEA [None]
  - ERYTHEMA [None]
  - INFUSION RELATED REACTION [None]
  - PRURITUS [None]
  - SOMNOLENCE [None]
